FAERS Safety Report 25740278 (Version 2)
Quarter: 2025Q3

REPORT INFORMATION
  Report Type: Spontaneous
  Country: CN (occurrence: CN)
  Receive Date: 20250829
  Receipt Date: 20250905
  Transmission Date: 20251021
  Serious: Yes (Hospitalization)
  Sender: GLAXOSMITHKLINE
  Company Number: CN-GSK-CN2025CHI107697

PATIENT
  Sex: Male
  Weight: 46 kg

DRUGS (2)
  1. LAMICTAL [Suspect]
     Active Substance: LAMOTRIGINE
     Indication: Product used for unknown indication
     Dosage: 20 DF, QD
  2. ARIPIPRAZOLE [Suspect]
     Active Substance: ARIPIPRAZOLE
     Indication: Intentional overdose
     Dosage: 50 MG, QD

REACTIONS (2)
  - Muscle twitching [Recovering/Resolving]
  - Intentional overdose [Unknown]
